FAERS Safety Report 24304943 (Version 1)
Quarter: 2024Q3

REPORT INFORMATION
  Report Type: Spontaneous
  Country: HR (occurrence: HR)
  Receive Date: 20240911
  Receipt Date: 20240911
  Transmission Date: 20241017
  Serious: Yes (Hospitalization, Other)
  Sender: CHATTEM
  Company Number: HR-SANOFI-AVENTIS-2011SA056460

PATIENT
  Age: 31 Year
  Sex: Female

DRUGS (42)
  1. IBUPROFEN [Suspect]
     Active Substance: IBUPROFEN
     Indication: Pain
     Dosage: DOSE DESCRIPTION : 400 MG
     Route: 065
     Dates: start: 200703
  2. ACETAMINOPHEN\TRAMADOL HYDROCHLORIDE [Suspect]
     Active Substance: ACETAMINOPHEN\TRAMADOL HYDROCHLORIDE
     Indication: Pain
     Dosage: DOSE: 3X 2 (375/325MG)
     Route: 065
     Dates: start: 200805
  3. ACETAMINOPHEN\TRAMADOL HYDROCHLORIDE [Suspect]
     Active Substance: ACETAMINOPHEN\TRAMADOL HYDROCHLORIDE
     Dosage: 37.5 MG/325MG 2 TABLETS 3 TIMES PER DAY
     Route: 065
     Dates: start: 200904
  4. ACETAMINOPHEN\TRAMADOL HYDROCHLORIDE [Suspect]
     Active Substance: ACETAMINOPHEN\TRAMADOL HYDROCHLORIDE
     Dosage: 37.5 MG/325MG 2 TABLETS 3 TIMES PER DAY
     Route: 065
     Dates: start: 200709
  5. ACETAMINOPHEN\TRAMADOL HYDROCHLORIDE [Suspect]
     Active Substance: ACETAMINOPHEN\TRAMADOL HYDROCHLORIDE
     Dosage: 2 DF TID
     Route: 065
     Dates: start: 200709
  6. ACETAMINOPHEN\TRAMADOL HYDROCHLORIDE [Suspect]
     Active Substance: ACETAMINOPHEN\TRAMADOL HYDROCHLORIDE
     Dosage: 37.5 MG/325MG 2 TABLETS 3 TIMES PER DAY
     Route: 065
     Dates: start: 200709
  7. ACETAMINOPHEN\TRAMADOL HYDROCHLORIDE [Suspect]
     Active Substance: ACETAMINOPHEN\TRAMADOL HYDROCHLORIDE
     Route: 065
     Dates: start: 201003
  8. RANITIDINE HYDROCHLORIDE [Suspect]
     Active Substance: RANITIDINE HYDROCHLORIDE
     Indication: Product used for unknown indication
     Dosage: DOSE: 2X150 MG
     Route: 065
     Dates: start: 200709
  9. PANTOPRAZOLE SODIUM [Suspect]
     Active Substance: PANTOPRAZOLE SODIUM
     Indication: Product used for unknown indication
     Dosage: DOSE DESCRIPTION : 20 MG
     Route: 065
     Dates: start: 200904
  10. ALLEGRA [Suspect]
     Active Substance: FEXOFENADINE HYDROCHLORIDE
     Indication: Pain
     Dosage: DOSE DESCRIPTION : 180 MG
     Route: 065
     Dates: start: 201003
  11. ALLEGRA [Suspect]
     Active Substance: FEXOFENADINE HYDROCHLORIDE
     Indication: Headache
  12. PIROXICAM [Suspect]
     Active Substance: PIROXICAM
     Indication: Pain
     Dosage: DOSE DESCRIPTION : 20 MG
     Route: 065
     Dates: start: 200709
  13. BACLOFEN [Suspect]
     Active Substance: BACLOFEN
     Indication: Pain
     Dosage: DOSE: 3X25 MG
     Route: 065
     Dates: start: 200805
  14. BACLOFEN [Suspect]
     Active Substance: BACLOFEN
     Dosage: DOSE DESCRIPTION : 10 MG, TID
     Route: 065
     Dates: start: 200709
  15. BACLOFEN [Suspect]
     Active Substance: BACLOFEN
     Dosage: DOSE: 3X25 MG
     Route: 065
     Dates: start: 201003
  16. OXYCODONE [Suspect]
     Active Substance: OXYCODONE
     Indication: Pain
     Route: 065
     Dates: start: 201003
  17. OXYCODONE [Suspect]
     Active Substance: OXYCODONE
     Dosage: MAR10 10MG PP
     Route: 065
     Dates: start: 200904
  18. ALPRAZOLAM [Suspect]
     Active Substance: ALPRAZOLAM
     Indication: Pain
     Dosage: DOSE DESCRIPTION : 0.5 MG, TID
     Route: 065
     Dates: start: 200805
  19. ALPRAZOLAM [Suspect]
     Active Substance: ALPRAZOLAM
     Indication: Persistent depressive disorder
  20. FENTANYL [Suspect]
     Active Substance: FENTANYL\FENTANYL CITRATE
     Indication: Pain
     Dosage: 100 UG/72 H, UNK
     Route: 062
     Dates: start: 201003
  21. SERTRALINE HYDROCHLORIDE [Suspect]
     Active Substance: SERTRALINE HYDROCHLORIDE
     Indication: Pain
     Dosage: 1DF:1 TABLET APR09 50MG
     Route: 065
     Dates: start: 200805
  22. SERTRALINE HYDROCHLORIDE [Suspect]
     Active Substance: SERTRALINE HYDROCHLORIDE
     Dosage: DOSE: 50 MG 1X1
     Route: 065
     Dates: start: 200904
  23. BUPRENORPHINE [Suspect]
     Active Substance: BUPRENORPHINE
     Indication: Pain
     Dosage: DOSE DESCRIPTION : 70 UG, Q3D
     Route: 065
     Dates: start: 200904
  24. BUPRENORPHINE [Suspect]
     Active Substance: BUPRENORPHINE
     Indication: Bradyphrenia
  25. GABAPENTIN [Suspect]
     Active Substance: GABAPENTIN
     Indication: Mental disorder
     Dosage: DOSE DESCRIPTION : 300 MG, TID
     Route: 065
     Dates: start: 200904
  26. GABAPENTIN [Suspect]
     Active Substance: GABAPENTIN
     Indication: Pain
  27. ESOMEPRAZOLE [Suspect]
     Active Substance: ESOMEPRAZOLE
     Indication: Asthenia
     Dosage: DOSE DESCRIPTION : 20 MG, BID
     Route: 065
     Dates: start: 201003
  28. DIAZEPAM [Suspect]
     Active Substance: DIAZEPAM
     Indication: Pain
     Dosage: DOSE DESCRIPTION : 5 MG, QD
     Route: 065
     Dates: start: 200709
  29. DIAZEPAM [Suspect]
     Active Substance: DIAZEPAM
     Dosage: DOSE DESCRIPTION : 2 MG
     Route: 065
     Dates: start: 201003
  30. DIAZEPAM [Suspect]
     Active Substance: DIAZEPAM
     Dosage: DOSE DESCRIPTION : 5 MG
     Route: 065
     Dates: start: 201003
  31. PREGABALIN [Suspect]
     Active Substance: PREGABALIN
     Indication: Pain
     Dosage: DOSE DESCRIPTION : 300 MG, BID
     Route: 065
     Dates: start: 201003
  32. LEVOTHYROXINE SODIUM [Suspect]
     Active Substance: LEVOTHYROXINE SODIUM
     Indication: Autoimmune thyroiditis
     Dosage: DOSE DESCRIPTION : 50 UG
     Route: 065
     Dates: start: 200904
  33. LEVOTHYROXINE SODIUM [Suspect]
     Active Substance: LEVOTHYROXINE SODIUM
     Indication: Hypothyroidism
     Dosage: DOSE DESCRIPTION : 75 UG
     Route: 065
     Dates: start: 201003
  34. LEVOTHYROXINE SODIUM [Suspect]
     Active Substance: LEVOTHYROXINE SODIUM
     Indication: Pain
     Dosage: DOSE DESCRIPTION : 75 UG
     Route: 065
     Dates: start: 200709
  35. LEVOTHYROXINE SODIUM [Suspect]
     Active Substance: LEVOTHYROXINE SODIUM
     Indication: Quadriparesis
     Dosage: 50 UG,UNK, 75 UG
     Route: 065
     Dates: start: 200703
  36. LEVOTHYROXINE SODIUM [Suspect]
     Active Substance: LEVOTHYROXINE SODIUM
     Dosage: DOSE DESCRIPTION : 50 UG
     Route: 065
     Dates: start: 200805
  37. LEVOTHYROXINE SODIUM [Suspect]
     Active Substance: LEVOTHYROXINE SODIUM
     Dosage: 50 UG,UNK, 75 UG
     Route: 065
     Dates: start: 200703
  38. GINKGO [Suspect]
     Active Substance: GINKGO
     Indication: Pain
     Dosage: DOSE DESCRIPTION : 120 MG
     Route: 065
     Dates: start: 201003
  39. GINKGO [Suspect]
     Active Substance: GINKGO
     Indication: Rash
  40. CARBAMAZEPINE [Suspect]
     Active Substance: CARBAMAZEPINE
     Indication: Pain
     Dosage: DOSE DESCRIPTION : 200 MG, TID
     Route: 065
     Dates: start: 200709
  41. CYANOCOBALAMIN\PYRIDOXINE\RIBOFLAVIN\THIAMINE [Suspect]
     Active Substance: CYANOCOBALAMIN\PYRIDOXINE\RIBOFLAVIN\THIAMINE
     Indication: Asthenia
     Dosage: 2 X 1 TABLET
     Route: 065
     Dates: start: 200805
  42. CYANOCOBALAMIN\PYRIDOXINE\RIBOFLAVIN\THIAMINE [Suspect]
     Active Substance: CYANOCOBALAMIN\PYRIDOXINE\RIBOFLAVIN\THIAMINE
     Indication: Pain
     Dosage: DOSE DESCRIPTION : 1 DF, BID
     Route: 065
     Dates: start: 200904

REACTIONS (33)
  - Conversion disorder [Unknown]
  - Sensory disturbance [Unknown]
  - Neurosis [Unknown]
  - Psychomotor skills impaired [Unknown]
  - Musculoskeletal stiffness [Unknown]
  - Diplopia [Unknown]
  - Cognitive disorder [Unknown]
  - Feeling abnormal [Unknown]
  - Quadriparesis [Unknown]
  - Loss of consciousness [Unknown]
  - Schizophrenia [Unknown]
  - Confusional state [Unknown]
  - Sedation [Unknown]
  - Disturbance in attention [Unknown]
  - Persistent depressive disorder [Unknown]
  - Condition aggravated [Unknown]
  - Euphoric mood [Unknown]
  - Pain [Unknown]
  - Syncope [Unknown]
  - Anxiety [Unknown]
  - Rash [Unknown]
  - Fatigue [Unknown]
  - Gastrointestinal motility disorder [Unknown]
  - Erythema [Unknown]
  - Nausea [Unknown]
  - Asthenia [Unknown]
  - Pruritus [Unknown]
  - Oedema [Unknown]
  - Vomiting [Unknown]
  - Depression [Unknown]
  - Constipation [Unknown]
  - Dizziness [Unknown]
  - Headache [Unknown]
